FAERS Safety Report 10791934 (Version 1)
Quarter: 2015Q1

REPORT INFORMATION
  Report Type: Spontaneous
  Country: US (occurrence: US)
  Receive Date: 20150213
  Receipt Date: 20150213
  Transmission Date: 20150721
  Serious: Yes (Death)
  Sender: FDA-Public Use
  Company Number: US-CIPLA LTD.-2015US01048

PATIENT

DRUGS (3)
  1. CITALOPRAM [Suspect]
     Active Substance: CITALOPRAM HYDROBROMIDE
     Route: 065
  2. COCAINE [Suspect]
     Active Substance: COCAINE
     Dosage: 0.03 MICROGRAM/ML
     Route: 042
  3. MORPHINE [Suspect]
     Active Substance: MORPHINE
     Dosage: 70 NG/ML
     Route: 042

REACTIONS (1)
  - Drug abuse [Fatal]
